FAERS Safety Report 21887779 (Version 1)
Quarter: 2023Q1

REPORT INFORMATION
  Report Type: Report from Study
  Country: US (occurrence: US)
  Receive Date: 20230120
  Receipt Date: 20230120
  Transmission Date: 20230417
  Serious: No
  Sender: FDA-Public Use
  Company Number: US-ABBVIE-4245808

PATIENT
  Sex: Female

DRUGS (1)
  1. HUMIRA [Suspect]
     Active Substance: ADALIMUMAB
     Indication: Hidradenitis
     Dosage: EVENT ONSET DATE IS 2022
     Route: 058
     Dates: start: 20221111

REACTIONS (2)
  - Stress [Unknown]
  - Hidradenitis [Not Recovered/Not Resolved]
